FAERS Safety Report 9512372 (Version 1)
Quarter: 2013Q1

REPORT INFORMATION
  Report Type: Spontaneous
  Country: US (occurrence: None)
  Receive Date: 20130305
  Receipt Date: 20130305
  Transmission Date: 20140127
  Serious: Yes (Hospitalization, Other)
  Sender: FDA-Public Use
  Company Number: 163-21880-11112875

PATIENT
  Age: 63 Year
  Sex: Female

DRUGS (8)
  1. REVLIMID (LENALIDOMIDE) (15 MILLIGRAM, CAPSULES) [Suspect]
     Indication: AMYLOIDOSIS
     Dosage: 15 MG, 1 IN 1 D, PO
     Route: 048
     Dates: start: 201110, end: 20111012
  2. TORASEMIDE (TORASEMIDE) (UNKNOWN) [Concomitant]
  3. DYAZIDE (DYAZIDE) (UNKNOWN) [Concomitant]
  4. METOPROLOL (METOPROLOL) (UNKNOWN) [Concomitant]
  5. CALCITROL (CALCITROL) (UNKNOWN) [Concomitant]
  6. ZOCOR (SIMVASTATIN) (UNKNOWN) [Concomitant]
  7. NALION (NORFLOXACIN) (UNKNOWN) [Concomitant]
  8. ASA (ACETYLSALICYLIC ACID) (UNKNOWN) [Concomitant]

REACTIONS (4)
  - Dehydration [None]
  - Abdominal discomfort [None]
  - Rectal haemorrhage [None]
  - Infection [None]
